FAERS Safety Report 10283267 (Version 3)
Quarter: 2014Q4

REPORT INFORMATION
  Report Type: Spontaneous
  Country: GB (occurrence: GB)
  Receive Date: 20140708
  Receipt Date: 20141003
  Transmission Date: 20150528
  Serious: Yes (Death, Other)
  Sender: FDA-Public Use
  Company Number: GB-BAYER-2014-100795

PATIENT
  Age: 50 Year
  Sex: Female

DRUGS (3)
  1. MIRENA [Suspect]
     Active Substance: LEVONORGESTREL
     Indication: HOT FLUSH
     Dosage: 20 MCG/24HR, CONT
     Route: 015
     Dates: start: 20130619, end: 20130730
  2. MIRENA [Suspect]
     Active Substance: LEVONORGESTREL
     Indication: NIGHT SWEATS
  3. RANITIDINE [Concomitant]
     Active Substance: RANITIDINE\RANITIDINE HYDROCHLORIDE
     Indication: GASTROOESOPHAGEAL REFLUX DISEASE
     Dosage: 1 DF, BID
     Dates: start: 20120622, end: 20131115

REACTIONS (15)
  - Medical device discomfort [None]
  - Generalised anxiety disorder [None]
  - Fatigue [None]
  - Procedural pain [None]
  - Anxiety [None]
  - Agitation [None]
  - Back pain [None]
  - Completed suicide [Fatal]
  - Negative thoughts [None]
  - Post procedural discomfort [None]
  - Abdominal pain lower [None]
  - Feeling abnormal [None]
  - Genital haemorrhage [None]
  - Panic attack [None]
  - Activities of daily living impaired [None]

NARRATIVE: CASE EVENT DATE: 201306
